FAERS Safety Report 7457529-1 (Version None)
Quarter: 2011Q2

REPORT INFORMATION
  Report Type: 
  Country: None (occurrence: None)
  Receive Date: 20110504
  Receipt Date: 20110428
  Transmission Date: 20111010
  Serious: Yes (Death, Hospitalization, Other)
  Sender: FDA-Public Use
  Company Number: JP-BRISTOL-MYERS SQUIBB COMPANY-15481997

PATIENT
  Age: 77 Year
  Sex: Female

DRUGS (12)
  1. PREDONINE [Concomitant]
     Indication: RHEUMATOID ARTHRITIS
     Dosage: DOSE UNIT:1 TABS DOSE INCREASED TO 30MG/KG
  2. KENTAN [Concomitant]
     Indication: RHEUMATOID ARTHRITIS
  3. LANSOPRAZOLE [Concomitant]
     Indication: REFLUX OESOPHAGITIS
  4. AMARYL [Concomitant]
  5. ORENCIA [Suspect]
     Indication: RHEUMATOID ARTHRITIS
     Dosage: ON 1NOV10 RECEIVED EVERY 4WKS 25OCT10:250MG 8NOV10:500MG 22NOV10:500MG 21DEC10:500MG
     Route: 041
     Dates: start: 20101025
  6. PROGRAF [Suspect]
  7. REBAMIPIDE [Concomitant]
     Indication: GASTRITIS PROPHYLAXIS
  8. ITRACONAZOLE [Concomitant]
     Dates: end: 20110111
  9. ISONIAZID [Concomitant]
  10. FOSAMAC [Concomitant]
  11. ACTEMRA [Concomitant]
     Dates: start: 20080819, end: 20100916
  12. PROCYLIN [Concomitant]
     Indication: CARDIOVASCULAR DISORDER

REACTIONS (8)
  - RESPIRATORY FAILURE [None]
  - PNEUMONIA [None]
  - PNEUMOTHORAX [None]
  - BRONCHOPULMONARY ASPERGILLOSIS [None]
  - HAEMORRHAGE [None]
  - FALL [None]
  - INTERSTITIAL LUNG DISEASE [None]
  - RIB FRACTURE [None]
